FAERS Safety Report 23415805 (Version 2)
Quarter: 2024Q1

REPORT INFORMATION
  Report Type: Spontaneous
  Country: US (occurrence: US)
  Receive Date: 20240118
  Receipt Date: 20240229
  Transmission Date: 20240409
  Serious: Yes (Other)
  Sender: FDA-Public Use
  Company Number: US-BoehringerIngelheim-2024-BI-003008

PATIENT
  Sex: Female

DRUGS (1)
  1. STIOLTO RESPIMAT [Suspect]
     Active Substance: OLODATEROL HYDROCHLORIDE\TIOTROPIUM BROMIDE MONOHYDRATE
     Indication: Product used for unknown indication
     Dosage: LOT NUM - 204003C, 005434A, 301587, 204092, 206428A, 301588, 206428, 104565

REACTIONS (3)
  - Hip fracture [Unknown]
  - Cough [Unknown]
  - Product delivery mechanism issue [Unknown]
